FAERS Safety Report 10701634 (Version 1)
Quarter: 2015Q1

REPORT INFORMATION
  Report Type: Spontaneous
  Country: US (occurrence: US)
  Receive Date: 20150109
  Receipt Date: 20150109
  Transmission Date: 20150721
  Serious: Yes (Death, Hospitalization)
  Sender: FDA-Public Use
  Company Number: US-BAYER-2015-002727

PATIENT
  Age: 38 Year
  Sex: Female

DRUGS (2)
  1. DIPHENHYDRAMINE HYDROCHLORIDE. [Suspect]
     Active Substance: DIPHENHYDRAMINE HYDROCHLORIDE
     Dosage: UNK
     Route: 048
  2. CAFFEINE. [Suspect]
     Active Substance: CAFFEINE
     Dosage: UNK
     Route: 048

REACTIONS (1)
  - Toxicity to various agents [Fatal]
